FAERS Safety Report 5665213-X (Version None)
Quarter: 2008Q1

REPORT INFORMATION
  Report Type: 
  Country: None (occurrence: None)
  Receive Date: 20080314
  Receipt Date: 20080220
  Transmission Date: 20080703
  Serious: Yes (Life-Threatening, Other)
  Sender: FDA-Public Use
  Company Number: US-ABBOTT-06P-163-0329819-00

PATIENT
  Sex: Female
  Weight: 60.382 kg

DRUGS (14)
  1. HUMIRA [Suspect]
     Indication: RHEUMATOID ARTHRITIS
     Route: 058
     Dates: start: 20050606, end: 20060213
  2. HUMIRA [Suspect]
     Dates: start: 20050117, end: 20050131
  3. HUMIRA [Suspect]
     Dates: start: 20050131, end: 20050606
  4. METHOTREXATE [Concomitant]
     Indication: RHEUMATOID ARTHRITIS
     Dates: start: 20040922, end: 20051205
  5. PANTOPRAZOLE SODIUM [Concomitant]
     Indication: GASTROOESOPHAGEAL REFLUX DISEASE
     Route: 048
     Dates: start: 20060301
  6. MELOXICAM [Concomitant]
     Indication: RHEUMATOID ARTHRITIS
     Dates: start: 20050422
  7. MELOXICAM [Concomitant]
     Dosage: 7.5-15 MG
     Dates: start: 20050829, end: 20051205
  8. FOLIC ACID [Concomitant]
     Indication: RHEUMATOID ARTHRITIS
     Dates: start: 20050901, end: 20051205
  9. FOLIC ACID [Concomitant]
  10. ESTROGENS CONJUGATED [Concomitant]
     Indication: DRUG USE FOR UNKNOWN INDICATION
  11. VITAMINS [Concomitant]
     Indication: DRUG USE FOR UNKNOWN INDICATION
  12. PARECOXIB SODIUM [Concomitant]
     Indication: DRUG USE FOR UNKNOWN INDICATION
     Dates: end: 20050411
  13. LEFLUNOMIDE [Concomitant]
     Indication: RHEUMATOID ARTHRITIS
     Route: 048
     Dates: start: 20070202
  14. VITAMIN B12 NOS [Concomitant]
     Indication: DRUG USE FOR UNKNOWN INDICATION
     Dates: end: 20070207

REACTIONS (61)
  - ABDOMINAL DISTENSION [None]
  - ABDOMINAL PAIN UPPER [None]
  - ALOPECIA [None]
  - ANAEMIA [None]
  - ANAL FISSURE [None]
  - ASTHENIA [None]
  - BACK PAIN [None]
  - BONE PAIN [None]
  - CONSTIPATION [None]
  - DEAFNESS [None]
  - DIFFUSE LARGE B-CELL LYMPHOMA STAGE III [None]
  - DRY EYE [None]
  - DRY MOUTH [None]
  - DRY SKIN [None]
  - DYSPEPSIA [None]
  - DYSPHAGIA [None]
  - DYSPNOEA [None]
  - DYSURIA [None]
  - ECONOMIC PROBLEM [None]
  - EPIGASTRIC DISCOMFORT [None]
  - EYE PRURITUS [None]
  - FATIGUE [None]
  - FOREIGN BODY SENSATION IN EYES [None]
  - GAIT DISTURBANCE [None]
  - HAEMORRHOIDS [None]
  - HEADACHE [None]
  - HYPOAESTHESIA [None]
  - HYPOKALAEMIA [None]
  - HYPOMAGNESAEMIA [None]
  - JOINT CREPITATION [None]
  - LEUKOPENIA [None]
  - LOCAL SWELLING [None]
  - MUSCLE SPASMS [None]
  - NAIL DISCOLOURATION [None]
  - NAIL DISORDER [None]
  - NECK MASS [None]
  - NECK PAIN [None]
  - NEUTROPENIA [None]
  - NIGHT SWEATS [None]
  - OEDEMA PERIPHERAL [None]
  - OSTEOARTHRITIS [None]
  - PAIN [None]
  - PAIN IN EXTREMITY [None]
  - PAIN IN JAW [None]
  - PAINFUL DEFAECATION [None]
  - PARAESTHESIA [None]
  - PERIPHERAL COLDNESS [None]
  - PHARYNGITIS [None]
  - PHARYNGOLARYNGEAL PAIN [None]
  - PHLEBITIS [None]
  - PHOTOSENSITIVITY REACTION [None]
  - PROCTALGIA [None]
  - PRURITUS [None]
  - PULMONARY EMBOLISM [None]
  - TENDERNESS [None]
  - TINNITUS [None]
  - TOOTHACHE [None]
  - VENIPUNCTURE SITE INFLAMMATION [None]
  - VESSEL PUNCTURE SITE PAIN [None]
  - VOMITING [None]
  - WEIGHT INCREASED [None]
